FAERS Safety Report 7807157-0 (Version None)
Quarter: 2011Q4

REPORT INFORMATION
  Report Type: 
  Country: None (occurrence: None)
  Receive Date: 20111011
  Receipt Date: 20111004
  Transmission Date: 20120403
  Serious: Yes (Other)
  Sender: FDA-Public Use
  Company Number: PHHY2011DE72365

PATIENT
  Sex: Female
  Weight: 72 kg

DRUGS (1)
  1. ZOMETA [Suspect]
     Indication: BREAST CANCER
     Dosage: 4 MG /5 ML
     Route: 042
     Dates: start: 20110701

REACTIONS (4)
  - GAIT DISTURBANCE [None]
  - BONE PAIN [None]
  - DYSSTASIA [None]
  - CHILLS [None]
